FAERS Safety Report 18710395 (Version 2)
Quarter: 2022Q3

REPORT INFORMATION
  Report Type: Spontaneous
  Country: US (occurrence: US)
  Receive Date: 20210106
  Receipt Date: 20220919
  Transmission Date: 20221027
  Serious: Yes (Other)
  Sender: FDA-Public Use
  Company Number: US-SAARTEMIS-SAC202112310346

PATIENT
  Age: 69 Year
  Sex: Male

DRUGS (3)
  1. ZANTAC [Suspect]
     Active Substance: RANITIDINE HYDROCHLORIDE
     Indication: Dyspepsia
     Dosage: 25 MG, QW
     Dates: start: 198807
  2. ZANTAC [Suspect]
     Active Substance: RANITIDINE HYDROCHLORIDE
     Indication: Hyperchlorhydria
     Dosage: 75 MG, QW
  3. ZANTAC [Suspect]
     Active Substance: RANITIDINE HYDROCHLORIDE
     Indication: Abdominal discomfort
     Dosage: 150 MG, QW
     Dates: end: 201606

REACTIONS (4)
  - Lung carcinoma cell type unspecified stage IV [Not Recovered/Not Resolved]
  - Disease progression [Not Recovered/Not Resolved]
  - Bladder cancer stage III [Unknown]
  - Prostate cancer stage III [Unknown]

NARRATIVE: CASE EVENT DATE: 20170101
